FAERS Safety Report 7724195-7 (Version None)
Quarter: 2011Q3

REPORT INFORMATION
  Report Type: 
  Country: None (occurrence: None)
  Receive Date: 20110901
  Receipt Date: 20110830
  Transmission Date: 20111222
  Serious: Yes (Other)
  Sender: FDA-Public Use
  Company Number: CHPA2011CH11634

PATIENT

DRUGS (1)
  1. NICOTINE [Suspect]
     Dosage: 21 MG, UNK
     Route: 065

REACTIONS (2)
  - PARESIS [None]
  - HYPOAESTHESIA [None]
